FAERS Safety Report 4533222-X (Version None)
Quarter: 2004Q4

REPORT INFORMATION
  Report Type: 
  Country: None (occurrence: None)
  Receive Date: 20041220
  Receipt Date: 20041220
  Transmission Date: 20050328
  Serious: Yes (Other)
  Sender: FDA-Public Use
  Company Number: None

PATIENT
  Age: 49 Year
  Sex: Male
  Weight: 79.8331 kg

DRUGS (2)
  1. LIPITOR [Suspect]
     Indication: HYPERCHOLESTEROLAEMIA
     Dosage: 5MG   DAILY   ORAL
     Route: 048
     Dates: start: 20040701, end: 20041217
  2. TRICOR [Concomitant]

REACTIONS (2)
  - MUSCLE STRAIN [None]
  - MYALGIA [None]
